FAERS Safety Report 21968611 (Version 1)
Quarter: 2023Q1

REPORT INFORMATION
  Report Type: Spontaneous
  Country: US (occurrence: US)
  Receive Date: 20230208
  Receipt Date: 20230208
  Transmission Date: 20230418
  Serious: No
  Sender: FDA-Public Use
  Company Number: US-BAYER-2023P008860

PATIENT
  Age: 65 Year
  Sex: Female

DRUGS (16)
  1. BETASERON [Suspect]
     Active Substance: INTERFERON BETA-1B
     Indication: Product used for unknown indication
  2. ASPIRIN [Concomitant]
     Active Substance: ASPIRIN
  3. ATORVASTATIN [Concomitant]
     Active Substance: ATORVASTATIN
  4. CLONIDINE [Concomitant]
     Active Substance: CLONIDINE
  5. DULOXETINE [Concomitant]
     Active Substance: DULOXETINE
  6. GEMFIBROZIL [Concomitant]
     Active Substance: GEMFIBROZIL
  7. LEVOTHYROXINE [Concomitant]
     Active Substance: LEVOTHYROXINE
  8. METOPROLOL [Concomitant]
     Active Substance: METOPROLOL
  9. MONTELUKAST [Concomitant]
     Active Substance: MONTELUKAST SODIUM
  10. NITROFURANTOIN [Concomitant]
     Active Substance: NITROFURANTOIN
  11. OLMESARTAN [Concomitant]
     Active Substance: OLMESARTAN
  12. OXCARBAZEPINE [Concomitant]
     Active Substance: OXCARBAZEPINE
  13. TIZANIDINE [Concomitant]
     Active Substance: TIZANIDINE
  14. ARMODAFINIL [Concomitant]
     Active Substance: ARMODAFINIL
  15. PRIMIDONE [Concomitant]
     Active Substance: PRIMIDONE
  16. VIBERZI [Concomitant]
     Active Substance: ELUXADOLINE

REACTIONS (2)
  - Injection site scar [Unknown]
  - Incorrect dose administered [Unknown]
